FAERS Safety Report 11735008 (Version 1)
Quarter: 2015Q4

REPORT INFORMATION
  Report Type: Spontaneous
  Country: PE (occurrence: PE)
  Receive Date: 20151113
  Receipt Date: 20151113
  Transmission Date: 20160304
  Serious: Yes (Other)
  Sender: FDA-Public Use
  Company Number: PE-PFIZER INC-2015378974

PATIENT
  Age: 71 Year
  Sex: Male

DRUGS (1)
  1. XALATAN [Suspect]
     Active Substance: LATANOPROST
     Dosage: 1 GTT EACH EYE, 1X/DAY
     Route: 047

REACTIONS (2)
  - Injury [Unknown]
  - Abasia [Unknown]
